FAERS Safety Report 8843699 (Version 1)
Quarter: 2012Q4

REPORT INFORMATION
  Report Type: 
  Country: US (occurrence: US)
  Receive Date: 20121016
  Receipt Date: 20121016
  Transmission Date: 20130627
  Serious: Yes (Other)
  Sender: FDA-Public Use
  Company Number: US-ROCHE-1132646

PATIENT
  Age: 62 Year
  Sex: Male

DRUGS (7)
  1. NUTROPIN [Suspect]
     Indication: HYPOPITUITARISM
     Route: 050
     Dates: start: 200009
  2. COZAAR [Concomitant]
  3. ZOCOR [Concomitant]
  4. SYNTHROID [Concomitant]
  5. NORVASC [Concomitant]
  6. GLUCOSAMINE [Concomitant]
  7. MULTIVITAMINS [Concomitant]

REACTIONS (1)
  - Hemianopia [Unknown]
